FAERS Safety Report 18174244 (Version 2)
Quarter: 2021Q3

REPORT INFORMATION
  Report Type: Report from Study
  Country: US (occurrence: US)
  Receive Date: 20200820
  Receipt Date: 20210910
  Transmission Date: 20211014
  Serious: Yes (Life-Threatening, Other)
  Sender: FDA-Public Use
  Company Number: US-PFIZER INC-2020320774

PATIENT

DRUGS (2)
  1. SIROLIMUS. [Suspect]
     Active Substance: SIROLIMUS
     Indication: PANCREATIC CARCINOMA METASTATIC
     Dosage: 6 MG, DAILY (CYCLES WERE 28 DAYS)
     Route: 048
  2. VISMODEGIB. [Suspect]
     Active Substance: VISMODEGIB
     Indication: PANCREATIC CARCINOMA METASTATIC
     Dosage: 150 MG, DAILY (CYCLES WERE 28 DAYS)

REACTIONS (1)
  - Hyponatraemia [Unknown]
